FAERS Safety Report 6453033-8 (Version None)
Quarter: 2009Q4

REPORT INFORMATION
  Report Type: 
  Country: None (occurrence: None)
  Receive Date: 20091124
  Receipt Date: 20090629
  Transmission Date: 20100525
  Serious: No
  Sender: FDA-Public Use
  Company Number: US-ABBOTT-09P-163-0582724-00

PATIENT
  Sex: Female
  Weight: 61.29 kg

DRUGS (16)
  1. TRICOR [Suspect]
     Indication: BLOOD TRIGLYCERIDES INCREASED
     Dates: start: 20081101
  2. LOVASA [Concomitant]
     Indication: DRUG USE FOR UNKNOWN INDICATION
     Dates: start: 20081101, end: 20090101
  3. LOVENOX [Concomitant]
     Indication: PULMONARY EMBOLISM
  4. PENTASA [Concomitant]
     Indication: DRUG USE FOR UNKNOWN INDICATION
     Route: 048
  5. MERCAPTOPURINE [Concomitant]
     Indication: DRUG USE FOR UNKNOWN INDICATION
  6. INDERAL ER [Concomitant]
     Indication: DRUG USE FOR UNKNOWN INDICATION
  7. CLONIDINE [Concomitant]
     Indication: DRUG USE FOR UNKNOWN INDICATION
     Dosage: AS REQUIRED
  8. MICRO-K [Concomitant]
     Indication: DRUG USE FOR UNKNOWN INDICATION
  9. TIMOLOL [Concomitant]
     Indication: DRUG USE FOR UNKNOWN INDICATION
     Dosage: BOTH EYES DAILY AT BEDTIME
  10. VIT B 12 [Concomitant]
     Indication: DRUG USE FOR UNKNOWN INDICATION
  11. VIT D [Concomitant]
     Indication: DRUG USE FOR UNKNOWN INDICATION
  12. VIT E [Concomitant]
     Indication: DRUG USE FOR UNKNOWN INDICATION
  13. VIT A [Concomitant]
     Indication: DRUG USE FOR UNKNOWN INDICATION
  14. MAGNESIUM [Concomitant]
     Indication: DRUG USE FOR UNKNOWN INDICATION
  15. FOLIC ACID [Concomitant]
     Indication: DRUG USE FOR UNKNOWN INDICATION
  16. BIOTIN [Concomitant]
     Indication: DRUG USE FOR UNKNOWN INDICATION

REACTIONS (1)
  - BLOOD MAGNESIUM DECREASED [None]
